FAERS Safety Report 24803314 (Version 1)
Quarter: 2025Q1

REPORT INFORMATION
  Report Type: Spontaneous
  Country: CH (occurrence: CH)
  Receive Date: 20250103
  Receipt Date: 20250103
  Transmission Date: 20250409
  Serious: No
  Sender: ALKEM
  Company Number: CH-ALKEM LABORATORIES LIMITED-CH-ALKEM-2024-17508

PATIENT
  Age: 44 Year
  Sex: Female

DRUGS (2)
  1. TACROLIMUS [Interacting]
     Active Substance: TACROLIMUS
     Indication: Immunosuppressant drug therapy
     Dosage: 3-38 MILLIGRAM DAILY
     Route: 065
  2. METAMIZOLE [Interacting]
     Active Substance: METAMIZOLE
     Indication: Analgesic therapy
     Route: 065

REACTIONS (2)
  - Immunosuppressant drug level decreased [Unknown]
  - Drug interaction [Unknown]
